FAERS Safety Report 9921527 (Version 1)
Quarter: 2014Q1

REPORT INFORMATION
  Report Type: Spontaneous
  Country: US (occurrence: US)
  Receive Date: 20140225
  Receipt Date: 20140225
  Transmission Date: 20141002
  Serious: No
  Sender: FDA-Public Use
  Company Number: US-PFIZER INC-2014049586

PATIENT
  Age: 67 Year
  Sex: Female
  Weight: 98.41 kg

DRUGS (16)
  1. XELJANZ [Suspect]
     Indication: RHEUMATOID ARTHRITIS
     Dosage: 5 MG, TWICE DAILY
     Route: 048
     Dates: start: 201312
  2. CYMBALTA [Concomitant]
     Dosage: UNK
  3. PREDNISONE [Concomitant]
     Dosage: UNK
  4. LYRICA [Concomitant]
     Dosage: UNK
  5. VICODIN [Concomitant]
     Dosage: UNK
  6. IMDUR [Concomitant]
     Dosage: UNK
  7. GLIMEPIRIDE [Concomitant]
     Dosage: UNK
  8. AMLODIPINE/BENAZEPRIL [Concomitant]
     Dosage: UNK
  9. FENOFIBRATE [Concomitant]
     Dosage: UNK
  10. METOPROLOL [Concomitant]
     Dosage: UNK
  11. MULTIVITAMINS AND IRON [Concomitant]
     Dosage: UNK
  12. FLEXERIL [Concomitant]
     Dosage: UNK
  13. CO Q-10 [Concomitant]
     Dosage: UNK
  14. FISH OIL [Concomitant]
     Dosage: UNK
  15. MELATONIN [Concomitant]
     Dosage: UNK
  16. RANEXA [Concomitant]
     Dosage: UNK

REACTIONS (2)
  - Pain in extremity [Not Recovered/Not Resolved]
  - Mobility decreased [Not Recovered/Not Resolved]
